FAERS Safety Report 20930737 (Version 1)
Quarter: 2022Q2

REPORT INFORMATION
  Report Type: Spontaneous
  Country: US (occurrence: US)
  Receive Date: 20220608
  Receipt Date: 20220608
  Transmission Date: 20220721
  Serious: No
  Sender: FDA-Public Use
  Company Number: US-KYOWAKIRIN-2022BKK008360

PATIENT

DRUGS (1)
  1. NOURIANZ [Suspect]
     Active Substance: ISTRADEFYLLINE
     Indication: Neoplasm malignant
     Dosage: 20 MG, QD (TAKE 1 TABLET ONCE A DAY)
     Route: 048
     Dates: start: 20220426, end: 20220513

REACTIONS (3)
  - Abdominal discomfort [Recovered/Resolved]
  - Crying [Recovered/Resolved]
  - Product use in unapproved indication [Unknown]

NARRATIVE: CASE EVENT DATE: 20220513
